FAERS Safety Report 4280263-6 (Version None)
Quarter: 2004Q1

REPORT INFORMATION
  Report Type: 
  Country: None (occurrence: None)
  Receive Date: 20040126
  Receipt Date: 20040113
  Transmission Date: 20041129
  Serious: Yes (Hospitalization)
  Sender: FDA-Public Use
  Company Number: A209807

PATIENT
  Age: 46 Year
  Sex: Female
  Weight: 68.0396 kg

DRUGS (7)
  1. ZOLOFT [Suspect]
     Indication: DEPRESSION
  2. GEODON [Suspect]
     Indication: DEPRESSION
     Dosage: 120 MG (TID)
     Dates: start: 20020101
  3. QUETIAPINE (QUETIAPINE) [Suspect]
     Indication: DEPRESSION
     Dates: end: 20020101
  4. ACETYLSALICYLIC ACID SRT [Concomitant]
  5. BUPROPION HYDROCHLORIDE [Concomitant]
  6. PAROXETINE HCL [Concomitant]
  7. CITALOPRAM (CITALOPRAM) [Concomitant]

REACTIONS (5)
  - INCONTINENCE [None]
  - INSOMNIA [None]
  - NIGHTMARE [None]
  - THYROID DISORDER [None]
  - WEIGHT INCREASED [None]
